FAERS Safety Report 5344512-5 (Version None)
Quarter: 2007Q2

REPORT INFORMATION
  Report Type: 
  Country: None (occurrence: None)
  Receive Date: 20070604
  Receipt Date: 20070524
  Transmission Date: 20071010
  Serious: Yes (Hospitalization)
  Sender: FDA-Public Use
  Company Number: BR-PFIZER INC-2007036893

PATIENT
  Sex: Female

DRUGS (8)
  1. SILDENAFIL (PAH) [Suspect]
     Indication: PULMONARY HYPERTENSION
     Route: 048
  2. ALDACTONE [Concomitant]
     Route: 048
  3. LASIX [Concomitant]
     Route: 048
  4. DIGOXIN [Concomitant]
     Route: 048
  5. ANCORON [Concomitant]
     Route: 048
  6. WARFARIN SODIUM [Concomitant]
  7. OXYGEN [Concomitant]
  8. BOSENTAN [Concomitant]
     Route: 048

REACTIONS (1)
  - CHOLELITHIASIS [None]
